FAERS Safety Report 20004932 (Version 4)
Quarter: 2022Q1

REPORT INFORMATION
  Report Type: Report from Study
  Country: KR (occurrence: KR)
  Receive Date: 20211028
  Receipt Date: 20220202
  Transmission Date: 20220424
  Serious: Yes (Life-Threatening, Hospitalization, Other)
  Sender: FDA-Public Use
  Company Number: KR-GLAXOSMITHKLINE-KR2021GSK221968

PATIENT
  Age: 40 Year
  Sex: Female
  Weight: 49.9 kg

DRUGS (15)
  1. BELIMUMAB [Suspect]
     Active Substance: BELIMUMAB
     Indication: Systemic lupus erythematosus
     Dosage: 496, SINGLE DOSE
     Route: 042
     Dates: start: 20210901
  2. BELIMUMAB [Suspect]
     Active Substance: BELIMUMAB
     Dosage: 448 SINGLE DOSE
     Route: 042
     Dates: start: 20210915
  3. BELIMUMAB [Suspect]
     Active Substance: BELIMUMAB
     Dosage: 448, SINGLE DOSE
     Route: 042
     Dates: start: 20210929
  4. SODIUM NITRITE [Suspect]
     Active Substance: SODIUM NITRITE
     Indication: Product used for unknown indication
     Dosage: TABLESPOON
     Dates: start: 20211024
  5. DEFLAZACORT [Concomitant]
     Active Substance: DEFLAZACORT
     Dosage: 48 MG, QD
     Route: 048
     Dates: start: 20210915, end: 20210921
  6. DEFLAZACORT [Concomitant]
     Active Substance: DEFLAZACORT
     Dosage: 36 MG,QD
     Route: 048
     Dates: start: 20210922, end: 20210928
  7. DEFLAZACORT [Concomitant]
     Active Substance: DEFLAZACORT
     Dosage: 30 MG, SINGLE
     Route: 048
     Dates: start: 20210929
  8. PREDNISOLONE [Concomitant]
     Active Substance: PREDNISOLONE
     Dosage: 25 MG, BID
     Route: 048
     Dates: start: 20210901, end: 20210914
  9. PREDNISOLONE [Concomitant]
     Active Substance: PREDNISOLONE
     Dosage: 25 MG, BID
  10. CIPOL-N [Concomitant]
     Dosage: 100 MG, BID
     Route: 048
     Dates: start: 20210728, end: 20211024
  11. CIPOL-N [Concomitant]
     Dosage: 100 UNK
  12. METHYLPREDNISOLONE [Concomitant]
     Active Substance: METHYLPREDNISOLONE
     Dosage: 125 MG
     Dates: start: 20210825, end: 20210831
  13. DEXILANT [Concomitant]
     Active Substance: DEXLANSOPRAZOLE
     Indication: Gastrointestinal disorder prophylaxis
     Dosage: 60 MG, SINGLE
     Route: 048
     Dates: start: 20210828
  14. CITRACAL F [Concomitant]
     Dosage: 1 DF, SINGLE
     Route: 048
     Dates: start: 20210402
  15. REBAMIPIDE [Concomitant]
     Active Substance: REBAMIPIDE
     Indication: Gastrointestinal disorder prophylaxis
     Dosage: 100 MG, SINGLE
     Route: 048
     Dates: start: 20171011

REACTIONS (2)
  - Suicide attempt [Recovered/Resolved]
  - Herpes zoster [Recovered/Resolved]

NARRATIVE: CASE EVENT DATE: 20211017
